FAERS Safety Report 7985260-2 (Version None)
Quarter: 2011Q4

REPORT INFORMATION
  Report Type: 
  Country: None (occurrence: None)
  Receive Date: 20111216
  Receipt Date: 20111209
  Transmission Date: 20120403
  Serious: Yes (Other)
  Sender: FDA-Public Use
  Company Number: JP-B.I. PHARMACEUTICALS,INC./RIDGEFIELD-2011-BP-27810NB

PATIENT
  Age: 75 Year
  Sex: Male
  Weight: 72 kg

DRUGS (5)
  1. SUNRYTHM [Concomitant]
     Indication: ARRHYTHMIA
     Route: 048
  2. ASPIRIN [Concomitant]
     Route: 048
  3. RIFAMPICIN [Concomitant]
     Indication: TUBERCULOSIS
     Route: 048
  4. ZETIA [Concomitant]
     Indication: HYPERLIPIDAEMIA
     Route: 048
  5. PRADAXA [Suspect]
     Indication: ATRIAL FIBRILLATION
     Dosage: 220 MG
     Route: 048
     Dates: start: 20110622

REACTIONS (1)
  - INTERSTITIAL LUNG DISEASE [None]
